FAERS Safety Report 10063430 (Version 1)
Quarter: 2014Q2

REPORT INFORMATION
  Report Type: Spontaneous
  Country: GB (occurrence: GB)
  Receive Date: 20140407
  Receipt Date: 20140407
  Transmission Date: 20141212
  Serious: Yes (Other)
  Sender: FDA-Public Use
  Company Number: GB-ACTAVISPR-2014-06386

PATIENT
  Age: 34 Year
  Sex: Male

DRUGS (4)
  1. ZOPICLONE (UNKNOWN) [Suspect]
     Indication: INSOMNIA
     Dosage: 7.5 MG, TWO TABLETS AT BEDTIME
     Route: 048
  2. CITALOPRAM (UNKNOWN) [Suspect]
     Indication: PRODUCT USED FOR UNKNOWN INDICATION
     Dosage: 25 MG, UNK
     Route: 065
  3. LORAZEPAM (UNKNOWN) [Suspect]
     Indication: PRODUCT USED FOR UNKNOWN INDICATION
     Dosage: 1 MG, UNK
     Route: 065
  4. VALIUM                             /00017001/ [Concomitant]
     Indication: PRODUCT USED FOR UNKNOWN INDICATION
     Dosage: UNK
     Route: 065

REACTIONS (3)
  - Aggression [Unknown]
  - Amnesia [Unknown]
  - Emotional disorder [Unknown]
